FAERS Safety Report 5784064-9 (Version None)
Quarter: 2008Q2

REPORT INFORMATION
  Report Type: 
  Country: None (occurrence: None)
  Receive Date: 20080605
  Receipt Date: 20080331
  Transmission Date: 20081010
  Serious: No
  Sender: FDA-Public Use
  Company Number: A0718273A

PATIENT
  Sex: Female

DRUGS (7)
  1. ALLI [Suspect]
  2. LOVASTATIN [Concomitant]
  3. QUINAPRIL [Concomitant]
  4. METHOTREXATE [Concomitant]
  5. VITAMIN B-12 [Concomitant]
  6. FOLIC ACID [Concomitant]
  7. TRAMADOL HCL [Concomitant]

REACTIONS (1)
  - WEIGHT INCREASED [None]
